FAERS Safety Report 20554372 (Version 4)
Quarter: 2022Q2

REPORT INFORMATION
  Report Type: Spontaneous
  Country: JP (occurrence: JP)
  Receive Date: 20220304
  Receipt Date: 20220405
  Transmission Date: 20220721
  Serious: Yes (Other)
  Sender: FDA-Public Use
  Company Number: JP-MSD-M2021-31000

PATIENT
  Age: 56 Year
  Sex: Female

DRUGS (2)
  1. KEYTRUDA [Suspect]
     Active Substance: PEMBROLIZUMAB
     Indication: Uterine cancer
     Dosage: 200 MILLIGRAM, Q3W
     Route: 041
     Dates: start: 20210927, end: 202203
  2. LENVATINIB MESYLATE [Suspect]
     Active Substance: LENVATINIB MESYLATE
     Indication: Uterine cancer
     Dosage: 20 MILLIGRAM, QD
     Route: 048
     Dates: start: 20220117, end: 20220204

REACTIONS (8)
  - Malignant neoplasm progression [Not Recovered/Not Resolved]
  - Thrombocytopenia [Recovered/Resolved]
  - Hypothyroidism [Recovered/Resolved]
  - Blood lactate dehydrogenase increased [Not Recovered/Not Resolved]
  - Pyrexia [Recovered/Resolved]
  - Hypertension [Recovered/Resolved]
  - Proteinuria [Not Recovered/Not Resolved]
  - Anaemia [Not Recovered/Not Resolved]

NARRATIVE: CASE EVENT DATE: 20211201
